FAERS Safety Report 9901901 (Version 1)
Quarter: 2014Q1

REPORT INFORMATION
  Report Type: Report from Study
  Country: JP (occurrence: JP)
  Receive Date: 20140217
  Receipt Date: 20140217
  Transmission Date: 20141002
  Serious: Yes (Other)
  Sender: FDA-Public Use
  Company Number: JP-VIIV HEALTHCARE LIMITED-B0969127A

PATIENT
  Age: 6 Decade
  Sex: Male

DRUGS (15)
  1. CELSENTRI [Suspect]
     Indication: HIV INFECTION
     Route: 048
     Dates: start: 20110425, end: 20120902
  2. CELSENTRI [Suspect]
     Indication: HIV INFECTION
     Route: 048
     Dates: start: 20120903
  3. ZIAGEN [Suspect]
     Indication: HIV INFECTION
     Route: 048
  4. EPIVIR [Suspect]
     Indication: HIV INFECTION
     Route: 048
  5. VIREAD [Suspect]
     Indication: HIV INFECTION
     Route: 048
     Dates: end: 20120902
  6. ISENTRESS [Suspect]
     Indication: HIV INFECTION
     Route: 048
     Dates: start: 20110425
  7. INTELENCE [Concomitant]
     Indication: HIV INFECTION
     Route: 048
     Dates: start: 20120903
  8. VIRACEPT [Concomitant]
     Indication: HIV INFECTION
     Route: 048
     Dates: end: 20110424
  9. VIRAMUNE [Concomitant]
     Indication: HIV INFECTION
     Route: 048
     Dates: end: 20110424
  10. BAYASPIRIN [Concomitant]
     Indication: RETINAL VEIN THROMBOSIS
     Dosage: 100MG PER DAY
     Route: 048
  11. BERIZYM [Concomitant]
     Indication: PROPHYLAXIS
     Dosage: 1G THREE TIMES PER DAY
     Route: 048
  12. OLMETEC [Concomitant]
     Indication: HYPERTENSION
     Route: 048
  13. AMLODIN [Concomitant]
     Indication: HYPERTENSION
     Route: 048
  14. PRONON [Concomitant]
     Indication: ARRHYTHMIA
     Dosage: 100MG THREE TIMES PER DAY
     Route: 048
  15. MAGLAX [Concomitant]
     Indication: PROPHYLAXIS
     Dosage: 500MG THREE TIMES PER DAY
     Route: 048

REACTIONS (2)
  - Renal impairment [Recovered/Resolved]
  - Headache [Recovering/Resolving]
